FAERS Safety Report 10056221 (Version 1)
Quarter: 2014Q2

REPORT INFORMATION
  Report Type: Spontaneous
  Country: GB (occurrence: GB)
  Receive Date: 20140403
  Receipt Date: 20140403
  Transmission Date: 20141212
  Serious: Yes (Hospitalization)
  Sender: FDA-Public Use
  Company Number: GB-JNJFOC-20140401488

PATIENT
  Age: 79 Year
  Sex: Female

DRUGS (5)
  1. XARELTO [Suspect]
     Indication: PRODUCT USED FOR UNKNOWN INDICATION
     Route: 048
     Dates: start: 20131219
  2. PROPRANOLOL [Concomitant]
     Route: 048
  3. TRIFLUOPERAZINE [Concomitant]
     Route: 048
  4. OMEPRAZOLE [Concomitant]
     Route: 048
  5. TRANYLCYPROMINE [Concomitant]
     Route: 048

REACTIONS (4)
  - Microcytic anaemia [Recovered/Resolved]
  - Dyspnoea [Unknown]
  - Syncope [Unknown]
  - Fatigue [Unknown]
